FAERS Safety Report 25758050 (Version 1)
Quarter: 2025Q3

REPORT INFORMATION
  Report Type: Spontaneous
  Country: US (occurrence: US)
  Receive Date: 20250903
  Receipt Date: 20250903
  Transmission Date: 20251021
  Serious: No
  Sender: SANOFI AVENTIS
  Company Number: US-SA-2025SA261985

PATIENT
  Age: 68 Year
  Sex: Female

DRUGS (2)
  1. KEVZARA [Suspect]
     Active Substance: SARILUMAB
     Indication: Polymyalgia rheumatica
     Dosage: 150 MG, QOW
     Route: 058
     Dates: start: 2024
  2. MOUNJARO [Concomitant]
     Active Substance: TIRZEPATIDE
     Dates: start: 2025

REACTIONS (4)
  - Pain in extremity [Unknown]
  - Musculoskeletal stiffness [Unknown]
  - Paraesthesia [Unknown]
  - Peripheral swelling [Unknown]

NARRATIVE: CASE EVENT DATE: 20250801
